FAERS Safety Report 8462426 (Version 4)
Quarter: 2012Q4

REPORT INFORMATION
  Report Type: 
  Country: US (occurrence: US)
  Receive Date: 20120316
  Receipt Date: 20121011
  Transmission Date: 20130627
  Serious: Yes (Hospitalization)
  Sender: FDA-Public Use
  Company Number: US-BAYER-2012-024434

PATIENT
  Age: 40 Year
  Sex: Female
  Weight: 71.2 kg

DRUGS (9)
  1. YAZ [Suspect]
     Indication: PREMENSTRUAL SYNDROME
     Dosage: UNK
     Dates: start: 201010, end: 201103
  2. YAZ [Suspect]
     Indication: PREMENSTRUAL SYNDROME
     Dosage: UNK
     Dates: start: 201011, end: 201103
  3. FLAGYL [Concomitant]
     Dosage: UNK
     Dates: start: 20101202
  4. METRONIDAZOLE [Concomitant]
     Dosage: 250mg tablets; take one tablet twice daily
     Route: 048
     Dates: start: 20101202
  5. SULFAMETHOXAZOLE W/TRIMETHOPRIM [Concomitant]
     Dosage: Take 1 tablet twice daily
     Route: 048
     Dates: start: 20101218
  6. ZOMIG [Concomitant]
     Indication: HEADACHE
     Dosage: Take 2 tablets, 10 mg as directed
     Route: 048
     Dates: start: 20110103
  7. ZANAFLEX [Concomitant]
     Dosage: 4mg; Take one capsule twice
     Route: 048
     Dates: start: 20110103
  8. TYLENOL [Concomitant]
     Dosage: 2 tabs prn ( interpreted as needed)
     Route: 048
     Dates: start: 20110303
  9. TYLENOL [Concomitant]

REACTIONS (4)
  - Deep vein thrombosis [None]
  - Pain in extremity [None]
  - Chest pain [None]
  - Quality of life decreased [None]
